FAERS Safety Report 17866097 (Version 2)
Quarter: 2020Q2

REPORT INFORMATION
  Report Type: Spontaneous
  Country: CH (occurrence: CH)
  Receive Date: 20200605
  Receipt Date: 20200615
  Transmission Date: 20200714
  Serious: Yes (Life-Threatening, Hospitalization)
  Sender: FDA-Public Use
  Company Number: CH-ASTRAZENECA-2020SE73031

PATIENT
  Age: 7594 Day
  Sex: Female

DRUGS (7)
  1. LORATADINE. [Suspect]
     Active Substance: LORATADINE
     Dosage: 10 MG UP TO 6 TABLETS
     Route: 065
  2. QUETIAPINE. [Suspect]
     Active Substance: QUETIAPINE
     Dosage: 25MG UP TO 50 TABLETS
     Route: 048
  3. TEMESTA (LORAZEPAM) [Suspect]
     Active Substance: LORAZEPAM
     Route: 065
  4. DAFALGAN [Suspect]
     Active Substance: ACETAMINOPHEN
     Dosage: 500 MG UP TO 50 TABLETS
     Route: 065
  5. PANTOPRAZOLUM [Suspect]
     Active Substance: PANTOPRAZOLE
     Dosage: 40 MG UNKNOWN QUANTITY
     Route: 065
  6. FLUOXETINE [Suspect]
     Active Substance: FLUOXETINE HYDROCHLORIDE
     Dosage: 20 MG UP TO 100 TABLETS
     Route: 065
  7. QUETIAPINE. [Suspect]
     Active Substance: QUETIAPINE
     Dosage: 400MG UP TO 20 TABLETS
     Route: 048

REACTIONS (1)
  - Poisoning [Not Recovered/Not Resolved]

NARRATIVE: CASE EVENT DATE: 20170121
